FAERS Safety Report 21458988 (Version 1)
Quarter: 2022Q4

REPORT INFORMATION
  Report Type: Spontaneous
  Country: US (occurrence: None)
  Receive Date: 20221013
  Receipt Date: 20221013
  Transmission Date: 20230112
  Serious: Yes (Hospitalization)
  Sender: FDA-Public Use
  Company Number: None

PATIENT
  Sex: Female

DRUGS (9)
  1. BETHKIS [Suspect]
     Active Substance: TOBRAMYCIN
  2. BACLOFEN [Concomitant]
     Active Substance: BACLOFEN
  3. ERYPED SUS [Concomitant]
  4. GABAPENTIN [Concomitant]
     Active Substance: GABAPENTIN
  5. INHALER COMP MIS [Concomitant]
  6. PREVACID CAP [Concomitant]
  7. TOBRAMYCIN [Concomitant]
  8. BETHK GEQ [Concomitant]
  9. TRILEPTAL SUS [Concomitant]

REACTIONS (1)
  - Spinal fusion surgery [None]
